FAERS Safety Report 18869504 (Version 7)
Quarter: 2023Q4

REPORT INFORMATION
  Report Type: Other
  Country: PT (occurrence: None)
  Receive Date: 20210209
  Receipt Date: 20231127
  Transmission Date: 20240109
  Serious: Yes (Hospitalization)
  Sender: FDA-Public Use
  Company Number: PT-ROCHE-2760670

PATIENT
  Age: 60 Year
  Sex: Female

DRUGS (25)
  1. HERCEPTIN [Suspect]
     Active Substance: TRASTUZUMAB
     Indication: HER2 positive breast cancer
     Route: 042
     Dates: start: 20170120, end: 20170323
  2. HERCEPTIN [Suspect]
     Active Substance: TRASTUZUMAB
     Route: 042
     Dates: start: 20170504, end: 20170830
  3. HERCEPTIN [Suspect]
     Active Substance: TRASTUZUMAB
     Route: 042
     Dates: start: 20171010, end: 20180102
  4. HERCEPTIN [Suspect]
     Active Substance: TRASTUZUMAB
     Route: 042
     Dates: start: 20180221, end: 20181218
  5. PERJETA [Suspect]
     Active Substance: PERTUZUMAB
     Indication: HER2 positive breast cancer
     Route: 042
     Dates: start: 20170504, end: 20170731
  6. PERJETA [Suspect]
     Active Substance: PERTUZUMAB
     Route: 042
     Dates: start: 20170213, end: 20170323
  7. TAXOTERE [Suspect]
     Active Substance: DOCETAXEL
     Indication: HER2 positive breast cancer
     Route: 042
     Dates: start: 20170504, end: 20170614
  8. TAXOTERE [Suspect]
     Active Substance: DOCETAXEL
     Route: 042
     Dates: start: 20170121, end: 20170323
  9. TAXOTERE [Suspect]
     Active Substance: DOCETAXEL
     Route: 042
     Dates: start: 20170120
  10. OLANZAPINE [Concomitant]
     Active Substance: OLANZAPINE
     Dosage: ONGOING = NOT CHECKED
     Dates: start: 20170615, end: 20190401
  11. OMEPRAZOLE [Concomitant]
     Active Substance: OMEPRAZOLE
     Dosage: ONGOING = CHECKED
     Dates: start: 20170615, end: 20221026
  12. ZOLEDRONIC ACID [Concomitant]
     Active Substance: ZOLEDRONIC ACID
     Route: 042
     Dates: start: 20180830, end: 20190116
  13. ZOLEDRONIC ACID [Concomitant]
     Active Substance: ZOLEDRONIC ACID
     Route: 042
     Dates: start: 20190221
  14. DIAZEPAM [Concomitant]
     Active Substance: DIAZEPAM
  15. CAPTOPRIL [Concomitant]
     Active Substance: CAPTOPRIL
  16. VALPROATE SODIUM [Concomitant]
     Active Substance: VALPROATE SODIUM
  17. TAZOBACTAM [Concomitant]
     Active Substance: TAZOBACTAM
  18. OSELTAMIVIR [Concomitant]
     Active Substance: OSELTAMIVIR
  19. PIPERACILIN [Concomitant]
  20. AMOXICILLIN [Concomitant]
     Active Substance: AMOXICILLIN
  21. AZITHROMYCIN [Concomitant]
     Active Substance: AZITHROMYCIN
  22. VALPROATE SODIUM [Concomitant]
     Active Substance: VALPROATE SODIUM
  23. FLUOXETINE HYDROCHLORIDE [Concomitant]
     Active Substance: FLUOXETINE HYDROCHLORIDE
  24. RAMIPRIL [Concomitant]
     Active Substance: RAMIPRIL
  25. CARVEDILOL [Concomitant]
     Active Substance: CARVEDILOL

REACTIONS (5)
  - Colitis [Recovered/Resolved]
  - General physical health deterioration [Recovered/Resolved]
  - Large intestine infection [Recovered/Resolved]
  - Ejection fraction decreased [Recovered/Resolved]
  - Ejection fraction decreased [Recovered/Resolved]

NARRATIVE: CASE EVENT DATE: 20170413
